FAERS Safety Report 4985319-8 (Version None)
Quarter: 2006Q2

REPORT INFORMATION
  Report Type: 
  Country: None (occurrence: None)
  Receive Date: 20060427
  Receipt Date: 20050616
  Transmission Date: 20061013
  Serious: Yes (Hospitalization, Other)
  Sender: FDA-Public Use
  Company Number: US-MERCK-0506USA02699

PATIENT
  Age: 67 Year
  Sex: Female
  Weight: 95 kg

DRUGS (7)
  1. VIOXX [Suspect]
     Indication: OSTEOARTHRITIS
     Route: 048
     Dates: start: 20000107
  2. VIOXX [Suspect]
     Route: 048
     Dates: start: 20010608, end: 20020613
  3. VIOXX [Suspect]
     Indication: BACK PAIN
     Route: 048
     Dates: start: 20000107
  4. VIOXX [Suspect]
     Route: 048
     Dates: start: 20010608, end: 20020613
  5. GLUCOPHAGE [Concomitant]
     Route: 048
  6. GLUCOTROL [Concomitant]
     Route: 065
  7. ACCUPRIL [Concomitant]
     Route: 065
     Dates: end: 20010904

REACTIONS (9)
  - BRADYCARDIA [None]
  - CEREBRAL ISCHAEMIA [None]
  - CEREBROVASCULAR ACCIDENT [None]
  - DIABETES MELLITUS NON-INSULIN-DEPENDENT [None]
  - EMOTIONAL DISTRESS [None]
  - HYPERLIPIDAEMIA [None]
  - HYPERTENSION [None]
  - PALPITATIONS [None]
  - STRESS [None]
